FAERS Safety Report 5655424-1 (Version None)
Quarter: 2008Q1

REPORT INFORMATION
  Report Type: 
  Country: None (occurrence: None)
  Receive Date: 20080307
  Receipt Date: 20080222
  Transmission Date: 20080703
  Serious: Yes (Other)
  Sender: FDA-Public Use
  Company Number: PHHY2008CA01824

PATIENT
  Age: 77 Year
  Sex: Female

DRUGS (4)
  1. EXELON [Suspect]
     Indication: DEMENTIA ALZHEIMER'S TYPE
     Dosage: 6 MG, QD
     Route: 048
  2. EXELON [Suspect]
     Dosage: 4.5 MG, QD
     Route: 048
     Dates: start: 20070327
  3. EXELON [Suspect]
     Dosage: 1.5 MG, TID
     Route: 048
  4. MEMANTINE HCL [Concomitant]
     Dosage: 5 MG/DAY

REACTIONS (5)
  - CHOKING [None]
  - DECREASED APPETITE [None]
  - DRUG INEFFECTIVE [None]
  - NAUSEA [None]
  - VOMITING [None]
